FAERS Safety Report 4999141-X (Version None)
Quarter: 2006Q2

REPORT INFORMATION
  Report Type: 
  Country: None (occurrence: None)
  Receive Date: 20060509
  Receipt Date: 20060418
  Transmission Date: 20061013
  Serious: Yes (Life-Threatening, Hospitalization, Disabling)
  Sender: FDA-Public Use
  Company Number: US200603000598

PATIENT
  Age: 76 Year
  Sex: Female

DRUGS (6)
  1. FORTEO [Suspect]
     Indication: OSTEOPOROSIS
     Dosage: 20 UG/DAY,
     Dates: start: 20040901, end: 20050601
  2. FORTEO [Suspect]
     Indication: OSTEOPOROSIS
     Dosage: 20 UG/DAY,
     Dates: start: 20050701
  3. FORTEO [Concomitant]
  4. NORVASC [Concomitant]
  5. SYNTHROID [Concomitant]
  6. COUMADIN [Concomitant]

REACTIONS (14)
  - DRUG ADMINISTRATION ERROR [None]
  - HAEMATOMA [None]
  - IMPAIRED HEALING [None]
  - INJECTION SITE HAEMATOMA [None]
  - LOWER LIMB FRACTURE [None]
  - MEDICAL DEVICE COMPLICATION [None]
  - MULTIPLE FRACTURES [None]
  - OEDEMA PERIPHERAL [None]
  - PAIN [None]
  - PHARMACEUTICAL PRODUCT COMPLAINT [None]
  - POLYTRAUMATISM [None]
  - ROAD TRAFFIC ACCIDENT [None]
  - SHOCK [None]
  - UPPER LIMB FRACTURE [None]
